FAERS Safety Report 7579883-2 (Version None)
Quarter: 2011Q2

REPORT INFORMATION
  Report Type: 
  Country: None (occurrence: None)
  Receive Date: 20110629
  Receipt Date: 20110616
  Transmission Date: 20111010
  Serious: Yes (Disabling)
  Sender: FDA-Public Use
  Company Number: US-ELI_LILLY_AND_COMPANY-US201106005740

PATIENT
  Sex: Female

DRUGS (3)
  1. LEVOTHYROXINE SODIUM [Concomitant]
  2. VITAMIN TAB [Concomitant]
  3. FORTEO [Suspect]
     Indication: OSTEOPOROSIS
     Dosage: 20 UG, QD
     Dates: start: 20090201, end: 20110101

REACTIONS (5)
  - TENDONITIS [None]
  - PAIN IN EXTREMITY [None]
  - WRIST FRACTURE [None]
  - MOBILITY DECREASED [None]
  - PROCEDURAL PAIN [None]
